FAERS Safety Report 15798314 (Version 1)
Quarter: 2019Q1

REPORT INFORMATION
  Report Type: Spontaneous
  Country: TW (occurrence: TW)
  Receive Date: 20190108
  Receipt Date: 20190108
  Transmission Date: 20190417
  Serious: Yes (Hospitalization, Other)
  Sender: FDA-Public Use
  Company Number: TW-PFIZER INC-2019006097

PATIENT
  Age: 33 Year
  Sex: Male

DRUGS (2)
  1. FLUNITRAZEPAM [Concomitant]
     Active Substance: FLUNITRAZEPAM
     Indication: PAIN
     Dosage: 2 MG/TIME
  2. NITROGLYCERIN. [Suspect]
     Active Substance: NITROGLYCERIN
     Indication: PAIN
     Dosage: UP-TITRATED FROM 0.6 TO 3.6 MG/DAY IN A YEAR
     Route: 042

REACTIONS (2)
  - Catatonia [Recovered/Resolved]
  - Drug abuse [Unknown]
